FAERS Safety Report 14757352 (Version 5)
Quarter: 2019Q3

REPORT INFORMATION
  Report Type: Spontaneous
  Country: US (occurrence: US)
  Receive Date: 20180413
  Receipt Date: 20190801
  Transmission Date: 20191004
  Serious: Yes (Other)
  Sender: FDA-Public Use
  Company Number: US-PFIZER INC-2018152348

PATIENT
  Sex: Female

DRUGS (30)
  1. PRILOSEC [Suspect]
     Active Substance: OMEPRAZOLE MAGNESIUM
     Dosage: UNK
     Route: 048
     Dates: start: 2011, end: 2016
  2. RELION NOVOLIN [Concomitant]
     Dosage: UNK, 70/30
     Dates: start: 2013
  3. PROPYLTHIOUR [Concomitant]
     Dosage: 50 MG, UNK
     Dates: start: 2007
  4. LORTAB [Concomitant]
     Active Substance: ACETAMINOPHEN\HYDROCODONE BITARTRATE
     Dosage: UNK, 5-500 MG
     Dates: start: 2008
  5. PROTONIX [Suspect]
     Active Substance: PANTOPRAZOLE SODIUM
     Dosage: UNK
     Route: 048
     Dates: start: 2011, end: 2016
  6. CRESTOR [Concomitant]
     Active Substance: ROSUVASTATIN CALCIUM
     Dosage: 5  MG, UNK
     Dates: start: 2007
  7. AMOXICILLIN. [Concomitant]
     Active Substance: AMOXICILLIN
     Dosage: 875 MG, UNK
     Dates: start: 2007
  8. PROPO-N/APAP [Concomitant]
     Dosage: UNK, 100-650 MG
     Dates: start: 2007
  9. HYDROCOD/ACETA [Concomitant]
     Dosage: UNK, 5-500 MG
     Dates: start: 2008
  10. NEXIUM [Suspect]
     Active Substance: ESOMEPRAZOLE MAGNESIUM
     Dosage: UNK
     Route: 048
     Dates: start: 2011, end: 2016
  11. DEXILANT [Suspect]
     Active Substance: DEXLANSOPRAZOLE
     Dosage: UNK
     Route: 048
     Dates: start: 2011, end: 2016
  12. PRILOSEC OTC [Suspect]
     Active Substance: OMEPRAZOLE MAGNESIUM
     Dosage: UNK
     Route: 048
     Dates: start: 2011, end: 2016
  13. TRI-VENT DPC 6-2-15-5 [Concomitant]
     Dosage: UNK
     Dates: start: 2007
  14. SMZ/TMP DS [Concomitant]
     Active Substance: SULFAMETHOXAZOLE\TRIMETHOPRIM
     Dosage: UNK, 800-160
     Dates: start: 2008
  15. NEXIUM [Suspect]
     Active Substance: ESOMEPRAZOLE MAGNESIUM
     Indication: GASTROOESOPHAGEAL REFLUX DISEASE
     Dosage: 40 MG, DAILY
     Dates: start: 2004, end: 2019
  16. TOPROL XL [Concomitant]
     Active Substance: METOPROLOL SUCCINATE
     Dosage: 200 MG, UNK
     Dates: start: 2007
  17. OMNICEF [Concomitant]
     Active Substance: CEFDINIR
     Dosage: 300 MG, UNK
     Dates: start: 2007
  18. NEXIUM [Suspect]
     Active Substance: ESOMEPRAZOLE MAGNESIUM
     Dosage: UNK
  19. NEXIUM 24HR [Suspect]
     Active Substance: ESOMEPRAZOLE MAGNESIUM
     Dosage: UNK
     Route: 048
     Dates: end: 2016
  20. PREVACID [Suspect]
     Active Substance: LANSOPRAZOLE
     Dosage: UNK
     Route: 048
     Dates: start: 2011, end: 2016
  21. BENICAR HCT [Concomitant]
     Active Substance: HYDROCHLOROTHIAZIDE\OLMESARTAN MEDOXOMIL
     Dosage: UNK, 40-25 MG
     Dates: start: 2007, end: 2008
  22. HUMULIN NOS [Concomitant]
     Active Substance: INSULIN HUMAN
     Dosage: UNK, 70/30
     Dates: start: 2007, end: 2009
  23. NIFEDIPINE ER OSMOTIC [Concomitant]
     Dosage: 60 MG, UNK
     Dates: start: 2007, end: 2008
  24. LIPITOR [Concomitant]
     Active Substance: ATORVASTATIN CALCIUM
     Dosage: 10 MG, UNK
     Dates: start: 2007
  25. PREVACID 24 HR [Suspect]
     Active Substance: LANSOPRAZOLE
     Dosage: UNK
     Dates: start: 2011, end: 2016
  26. OMEPRAZOLE. [Suspect]
     Active Substance: OMEPRAZOLE
     Dosage: 20 MG, UNK
     Dates: start: 2007
  27. TRICOR [Concomitant]
     Active Substance: FENOFIBRATE
     Dosage: 145 MG, UNK
     Dates: start: 2007, end: 2008
  28. METOPROLOL ER [Concomitant]
     Active Substance: METOPROLOL SUCCINATE
     Dosage: 200 MG, UNK
     Dates: start: 2007, end: 2008
  29. LORATADINE. [Concomitant]
     Active Substance: LORATADINE
     Dosage: 10 MG, UNK
     Dates: start: 2007
  30. CIPROFLOXACIN. [Concomitant]
     Active Substance: CIPROFLOXACIN
     Dosage: 500 MG, UNK
     Dates: start: 2008

REACTIONS (6)
  - Chronic kidney disease [Not Recovered/Not Resolved]
  - Acute kidney injury [Unknown]
  - Renal impairment [Unknown]
  - Renal failure [Not Recovered/Not Resolved]
  - Renal haemangioma [Unknown]
  - Rebound acid hypersecretion [Unknown]
